FAERS Safety Report 9767829 (Version 1)
Quarter: 2013Q4

REPORT INFORMATION
  Report Type: Spontaneous
  Country: US (occurrence: US)
  Receive Date: 20131217
  Receipt Date: 20131217
  Transmission Date: 20140711
  Serious: No
  Sender: FDA-Public Use
  Company Number: US-PFIZER INC-2013357419

PATIENT
  Age: 68 Year
  Sex: Female
  Weight: 74.8 kg

DRUGS (2)
  1. PREMARIN [Suspect]
     Indication: OESTROGEN REPLACEMENT THERAPY
     Dosage: 0.3 MG, 1X/DAY
     Dates: start: 1996
  2. DOXEPIN [Concomitant]
     Indication: IRRITABLE BOWEL SYNDROME
     Dosage: 75 MG, 1X/DAY

REACTIONS (5)
  - Arthralgia [Unknown]
  - Poor quality sleep [Unknown]
  - Malaise [Unknown]
  - Therapeutic response unexpected [Unknown]
  - Memory impairment [Unknown]
